FAERS Safety Report 6303482-3 (Version None)
Quarter: 2009Q3

REPORT INFORMATION
  Report Type: 
  Country: None (occurrence: None)
  Receive Date: 20090810
  Receipt Date: 20090804
  Transmission Date: 20100115
  Serious: Yes (Hospitalization)
  Sender: FDA-Public Use
  Company Number: PHHY2009CA32882

PATIENT
  Sex: Male

DRUGS (2)
  1. SANDOSTATIN [Suspect]
     Dosage: 100 UG, TID
     Route: 058
     Dates: start: 20090618
  2. SANDOSTATIN LAR [Suspect]
     Indication: LUNG NEOPLASM MALIGNANT
     Dosage: 20 MG, EVERY 4 WEEKS
     Route: 030
     Dates: start: 20090804

REACTIONS (5)
  - DIARRHOEA [None]
  - EATING DISORDER [None]
  - FLUSHING [None]
  - PAIN [None]
  - VOMITING [None]
